FAERS Safety Report 10205214 (Version 1)
Quarter: 2014Q2

REPORT INFORMATION
  Report Type: Spontaneous
  Country: US (occurrence: US)
  Receive Date: 20140529
  Receipt Date: 20140529
  Transmission Date: 20141212
  Serious: Yes (Death)
  Sender: FDA-Public Use
  Company Number: US-PFIZER INC-2014143843

PATIENT
  Age: 64 Year
  Sex: Male
  Weight: 78.46 kg

DRUGS (8)
  1. VFEND [Suspect]
     Dosage: 200 MG, 2X/DAY
     Route: 048
     Dates: start: 201403
  2. ACYCLOVIR [Concomitant]
     Dosage: UNK
  3. OMEPRAZOLE [Concomitant]
     Dosage: UNK
  4. AMOXICILLIN [Concomitant]
     Dosage: UNK
  5. TYLENOL [Concomitant]
     Dosage: UNK
  6. OXYCODONE [Concomitant]
     Dosage: UNK
  7. LORAZEPAM [Concomitant]
     Dosage: UNK
  8. CIPROFLOXACIN [Concomitant]
     Dosage: UNK

REACTIONS (2)
  - Leukaemia [Fatal]
  - Renal failure acute [Fatal]
